FAERS Safety Report 10213713 (Version 1)
Quarter: 2014Q2

REPORT INFORMATION
  Report Type: Report from Study
  Country: ES (occurrence: None)
  Receive Date: 20140530
  Receipt Date: 20140530
  Transmission Date: 20141212
  Serious: Yes (Death, Life-Threatening, Hospitalization)
  Sender: FDA-Public Use
  Company Number: 2361836

PATIENT
  Age: 54 Year
  Sex: Male

DRUGS (18)
  1. GEMCITABINE HYDROCHLORIDE [Suspect]
     Indication: BLADDER CANCER
     Route: 042
     Dates: start: 20111123, end: 20111130
  2. INVESTIGATIONAL DRUG [Suspect]
     Indication: BLADDER CANCER
     Route: 042
     Dates: start: 20111123, end: 20111130
  3. IBUPROFEN [Concomitant]
  4. CISPLATIN [Suspect]
     Indication: BLADDER CANCER
     Route: 041
     Dates: end: 20111123
  5. OMEPRAZOLE [Concomitant]
  6. DEXAMETHASONE [Concomitant]
  7. TARGIN [Concomitant]
  8. DIAMICRON [Concomitant]
  9. METFORMIN [Concomitant]
  10. PANTOPRAZOLE [Concomitant]
  11. LORAZEPAM [Concomitant]
  12. FILGRASTIM [Concomitant]
  13. METOCLOPRAMIDE [Concomitant]
  14. SENNOSIDE A+B CALCIUM [Concomitant]
  15. LACTITOL [Concomitant]
  16. CIPROFLOXACIN [Concomitant]
  17. IMIPENEM [Concomitant]
  18. DEXKETOPROFEN TROMETAMOL [Concomitant]

REACTIONS (7)
  - Febrile neutropenia [None]
  - Gastrointestinal perforation [None]
  - Toxic shock syndrome [None]
  - Disease progression [None]
  - Intestinal ischaemia [None]
  - Haemoglobin decreased [None]
  - Platelet count decreased [None]
